FAERS Safety Report 8808642 (Version 2)
Quarter: 2012Q4

REPORT INFORMATION
  Report Type: 
  Country: JP (occurrence: JP)
  Receive Date: 20120926
  Receipt Date: 20121010
  Transmission Date: 20130627
  Serious: No
  Sender: FDA-Public Use
  Company Number: PHHY2012JP082822

PATIENT
  Age: 98 Year
  Sex: Female

DRUGS (4)
  1. EXELON PATCH [Suspect]
     Indication: DEMENTIA ALZHEIMER^S TYPE
     Dosage: 4.5 mg, daily
     Route: 062
     Dates: start: 20120711, end: 20120806
  2. EXELON PATCH [Suspect]
     Dosage: 9 mg, daily
     Route: 062
     Dates: start: 20120807, end: 20120903
  3. EXELON PATCH [Suspect]
     Dosage: 13.5 mg, Daily
     Route: 062
     Dates: start: 20120904, end: 20120920
  4. EXELON PATCH [Suspect]
     Dosage: 9 mg, daily
     Route: 062
     Dates: start: 20120920

REACTIONS (3)
  - Hallucination, visual [Recovered/Resolved]
  - Hallucination [Recovered/Resolved]
  - Asthenia [Unknown]
